FAERS Safety Report 11729198 (Version 1)
Quarter: 2015Q4

REPORT INFORMATION
  Report Type: Spontaneous
  Country: US (occurrence: US)
  Receive Date: 20151112
  Receipt Date: 20151112
  Transmission Date: 20160304
  Serious: No
  Sender: FDA-Public Use
  Company Number: US-PFIZER INC-2015365274

PATIENT
  Sex: Male

DRUGS (1)
  1. ADVIL [Suspect]
     Active Substance: IBUPROFEN
     Indication: TOOTHACHE
     Dosage: 400 MG, DAILY (TABLETS, 200MG, TOOK TWO OF THEM)

REACTIONS (3)
  - Drug ineffective [Unknown]
  - Toothache [Unknown]
  - Hypoaesthesia oral [Unknown]
